FAERS Safety Report 7107720-9 (Version None)
Quarter: 2010Q4

REPORT INFORMATION
  Report Type: 
  Country: None (occurrence: None)
  Receive Date: 20101117
  Receipt Date: 20101108
  Transmission Date: 20110411
  Serious: Yes (Other)
  Sender: FDA-Public Use
  Company Number: US-CEPHALON-2010005818

PATIENT
  Sex: Female
  Weight: 47 kg

DRUGS (3)
  1. FENTORA [Suspect]
     Indication: BACK PAIN
     Route: 002
     Dates: start: 20070101
  2. FENTORA [Suspect]
     Indication: FIBROMYALGIA
     Route: 002
     Dates: start: 20070101
  3. PERCOCET [Concomitant]

REACTIONS (3)
  - DRUG PRESCRIBING ERROR [None]
  - PAIN [None]
  - REBOUND EFFECT [None]
